FAERS Safety Report 7300839-9 (Version None)
Quarter: 2010Q4

REPORT INFORMATION
  Report Type: 
  Country: None (occurrence: None)
  Receive Date: 20101230
  Receipt Date: 20100806
  Transmission Date: 20110411
  Serious: Yes (Other)
  Sender: FDA-Public Use
  Company Number: 20100367

PATIENT
  Age: 16 Year
  Sex: Female

DRUGS (2)
  1. VENOFER [Suspect]
     Indication: ANAEMIA
     Dates: start: 20100507, end: 20100507
  2. IRON [Concomitant]

REACTIONS (3)
  - ABDOMINAL PAIN [None]
  - ANAPHYLACTOID REACTION [None]
  - PAIN IN EXTREMITY [None]
